FAERS Safety Report 4620679-9 (Version None)
Quarter: 2005Q1

REPORT INFORMATION
  Report Type: 
  Country: None (occurrence: None)
  Receive Date: 20050325
  Receipt Date: 20050321
  Transmission Date: 20050727
  Serious: Yes (Life-Threatening, Hospitalization)
  Sender: FDA-Public Use
  Company Number: HQWYE779907DEC04

PATIENT
  Age: 47 Year
  Sex: Male

DRUGS (2)
  1. EFFEXOR XR [Suspect]
     Indication: MAJOR DEPRESSION
     Dosage: ^150 BID^, ORAL
     Route: 048
     Dates: start: 20040401, end: 20040801
  2. CRESTOR [Concomitant]

REACTIONS (2)
  - HEAT EXHAUSTION [None]
  - RHABDOMYOLYSIS [None]
